FAERS Safety Report 8016928-X (Version None)
Quarter: 2012Q1

REPORT INFORMATION
  Report Type: 
  Country: None (occurrence: None)
  Receive Date: 20120102
  Receipt Date: 20111222
  Transmission Date: 20120608
  Serious: Yes (Death)
  Sender: FDA-Public Use
  Company Number: PHHY2011ES113386

PATIENT

DRUGS (2)
  1. CERTICAN [Suspect]
     Indication: LIVER TRANSPLANT
     Dosage: 2.23 MG, DAILY
  2. SORAFENIB [Suspect]
     Indication: LIVER TRANSPLANT
     Dosage: 400 MG, BID

REACTIONS (1)
  - CEREBRAL HAEMORRHAGE [None]
